FAERS Safety Report 11590008 (Version 1)
Quarter: 2015Q4

REPORT INFORMATION
  Report Type: Spontaneous
  Country: BE (occurrence: BE)
  Receive Date: 20151002
  Receipt Date: 20151002
  Transmission Date: 20160304
  Serious: Yes (Hospitalization, Other)
  Sender: FDA-Public Use
  Company Number: BE-009507513-1509BEL000640

PATIENT
  Age: 55 Year
  Sex: Male

DRUGS (6)
  1. ESMERON [Suspect]
     Active Substance: ROCURONIUM BROMIDE
     Indication: ENDOTRACHEAL INTUBATION
     Dosage: UNK
     Dates: start: 20150723, end: 20150723
  2. SOLU-MEDROL [Concomitant]
     Active Substance: METHYLPREDNISOLONE SODIUM SUCCINATE
  3. DUOVENT [Concomitant]
     Active Substance: FENOTEROL HYDROBROMIDE
  4. COMBIVENT [Concomitant]
     Active Substance: ALBUTEROL SULFATE\IPRATROPIUM BROMIDE
     Dosage: UNK, PRN
  5. SUFENTA [Concomitant]
     Active Substance: SUFENTANIL CITRATE
  6. PROPOFOL. [Concomitant]
     Active Substance: PROPOFOL

REACTIONS (5)
  - Generalised erythema [Unknown]
  - Bronchospasm [Recovered/Resolved]
  - Renal failure [Recovered/Resolved]
  - Metabolic acidosis [Recovered/Resolved]
  - Anaphylactic shock [Recovered/Resolved]

NARRATIVE: CASE EVENT DATE: 20150723
